FAERS Safety Report 24601205 (Version 1)
Quarter: 2024Q4

REPORT INFORMATION
  Report Type: Spontaneous
  Country: US (occurrence: US)
  Receive Date: 20241111
  Receipt Date: 20241111
  Transmission Date: 20250115
  Serious: Yes (Death, Hospitalization, Other)
  Sender: VIIV
  Company Number: US-ViiV Healthcare-US2024GSK137955

PATIENT

DRUGS (15)
  1. DOLUTEGRAVIR [Suspect]
     Active Substance: DOLUTEGRAVIR
     Indication: HIV infection
     Dosage: UNK
  2. TENOFOVIR DISOPROXIL FUMARATE [Suspect]
     Active Substance: TENOFOVIR DISOPROXIL FUMARATE
     Indication: HIV infection
     Dosage: UNK
  3. EMTRICITABINE [Suspect]
     Active Substance: EMTRICITABINE
     Indication: HIV infection
     Dosage: UNK
  4. CEFTRIAXONE [Suspect]
     Active Substance: CEFTRIAXONE
     Indication: Lung abscess
     Dosage: UNK
  5. VORICONAZOLE [Suspect]
     Active Substance: VORICONAZOLE
     Indication: Bronchopulmonary aspergillosis
     Dosage: UNK
  6. LEVETIRACETAM [Suspect]
     Active Substance: LEVETIRACETAM
     Indication: Bronchopulmonary aspergillosis
     Dosage: UNK
  7. LEVETIRACETAM [Suspect]
     Active Substance: LEVETIRACETAM
     Indication: Cerebral aspergillosis
  8. DEXAMETHASONE [Suspect]
     Active Substance: DEXAMETHASONE
     Indication: Bronchopulmonary aspergillosis
     Dosage: UNK
  9. DEXAMETHASONE [Suspect]
     Active Substance: DEXAMETHASONE
     Indication: Cerebral aspergillosis
  10. DOXORUBICIN HYDROCHLORIDE [Suspect]
     Active Substance: DOXORUBICIN HYDROCHLORIDE
     Indication: Kaposi^s sarcoma
     Dosage: UNK 4 CYCLES
  11. PACLITAXEL [Suspect]
     Active Substance: PACLITAXEL
     Indication: Kaposi^s sarcoma
     Dosage: UNK 4 CYCLES
  12. SULFAMETHOXAZOLE\TRIMETHOPRIM [Suspect]
     Active Substance: SULFAMETHOXAZOLE\TRIMETHOPRIM
     Indication: Product used for unknown indication
     Dosage: UNK
  13. NOREPINEPHRINE [Suspect]
     Active Substance: NOREPINEPHRINE\NOREPINEPHRINE BITARTRATE
     Indication: Product used for unknown indication
     Dosage: UNK
  14. EPINEPHRINE [Suspect]
     Active Substance: EPINEPHRINE
     Indication: Product used for unknown indication
     Dosage: UNK
  15. PHENYLEPHRINE [Suspect]
     Active Substance: PHENYLEPHRINE HYDROCHLORIDE
     Indication: Product used for unknown indication
     Dosage: UNK

REACTIONS (45)
  - Immune reconstitution inflammatory syndrome associated Kaposi^s sarcoma [Fatal]
  - Acute respiratory failure [Fatal]
  - Dyspnoea [Unknown]
  - Productive cough [Unknown]
  - Sputum discoloured [Unknown]
  - Generalised tonic-clonic seizure [Unknown]
  - Headache [Unknown]
  - Muscular weakness [Unknown]
  - Pulmonary mass [Recovered/Resolved]
  - Lung disorder [Recovered/Resolved]
  - Lung opacity [Unknown]
  - Lung consolidation [Unknown]
  - Lung abscess [Unknown]
  - Pulmonary granuloma [Unknown]
  - Bronchopulmonary aspergillosis [Unknown]
  - Central nervous system lesion [Unknown]
  - Brain oedema [Unknown]
  - Noninfective encephalitis [Unknown]
  - Cerebral aspergillosis [Unknown]
  - Haemoptysis [Unknown]
  - Skin lesion [Unknown]
  - Oral papule [Unknown]
  - Oral disorder [Unknown]
  - Lymphadenopathy [Unknown]
  - Lymphadenopathy mediastinal [Unknown]
  - Hilar lymphadenopathy [Unknown]
  - Hepatic mass [Unknown]
  - Spleen disorder [Unknown]
  - Erythema [Unknown]
  - Kaposi^s sarcoma [Fatal]
  - Hypoxia [Unknown]
  - Condition aggravated [Fatal]
  - Pyrexia [Unknown]
  - Night sweats [Unknown]
  - Decreased appetite [Unknown]
  - Seizure [Unknown]
  - Disease progression [Fatal]
  - Post procedural haemorrhage [Unknown]
  - Pleural effusion [Unknown]
  - Acute kidney injury [Fatal]
  - Acute hepatic failure [Fatal]
  - Multiple organ dysfunction syndrome [Fatal]
  - Cardiac arrest [Fatal]
  - Drug ineffective [Fatal]
  - Treatment noncompliance [Unknown]
